FAERS Safety Report 18819658 (Version 13)
Quarter: 2021Q4

REPORT INFORMATION
  Report Type: Report from Study
  Country: RU (occurrence: RU)
  Receive Date: 20210202
  Receipt Date: 20211201
  Transmission Date: 20220303
  Serious: Yes (Hospitalization, Other)
  Sender: FDA-Public Use
  Company Number: RU-SAARTEMIS-SAC202112290742

PATIENT
  Age: 24 Year
  Sex: Female
  Weight: 60 kg

DRUGS (1)
  1. ALEMTUZUMAB [Suspect]
     Active Substance: ALEMTUZUMAB
     Indication: Multiple sclerosis
     Dosage: UNK
     Route: 041
     Dates: start: 2019, end: 201912

REACTIONS (36)
  - Hyperthyroidism [Not Recovered/Not Resolved]
  - Psychomotor hyperactivity [Recovered/Resolved]
  - Nervousness [Recovered/Resolved]
  - Sleep disorder [Recovered/Resolved]
  - Weight decreased [Unknown]
  - Tremor [Unknown]
  - Depression [Recovering/Resolving]
  - Mood swings [Recovering/Resolving]
  - Basedow^s disease [Unknown]
  - Frequent bowel movements [Unknown]
  - Fatigue [Unknown]
  - Arthralgia [Unknown]
  - Myalgia [Unknown]
  - Menstruation irregular [Unknown]
  - Muscular weakness [Unknown]
  - Dry skin [Unknown]
  - Hair texture abnormal [Unknown]
  - Alopecia [Unknown]
  - Temperature intolerance [Unknown]
  - Arrhythmia [Unknown]
  - Heart rate increased [Unknown]
  - Mood swings [Unknown]
  - Heavy menstrual bleeding [Unknown]
  - Infertility female [Unknown]
  - Oligomenorrhoea [Unknown]
  - Hypomenorrhoea [Unknown]
  - Thyroxine abnormal [Unknown]
  - Tri-iodothyronine abnormal [Unknown]
  - Multiple sclerosis [Not Recovered/Not Resolved]
  - Road traffic accident [Not Recovered/Not Resolved]
  - Joint injury [Not Recovered/Not Resolved]
  - Asthenia [Not Recovered/Not Resolved]
  - Therapeutic drug monitoring analysis not performed [Not Recovered/Not Resolved]
  - General physical health deterioration [Not Recovered/Not Resolved]
  - Eye swelling [Recovered/Resolved]
  - Pain in extremity [Recovering/Resolving]

NARRATIVE: CASE EVENT DATE: 20200701
